FAERS Safety Report 13259327 (Version 1)
Quarter: 2017Q1

REPORT INFORMATION
  Report Type: Other
  Country: IL (occurrence: IL)
  Receive Date: 20170222
  Receipt Date: 20170222
  Transmission Date: 20170428
  Serious: Yes (Life-Threatening, Other)
  Sender: FDA-Public Use
  Company Number: IL-GE HEALTHCARE LIFE SCIENCES-2017CSU000037

PATIENT

DRUGS (1)
  1. OMNIPAQUE [Suspect]
     Active Substance: IOHEXOL
     Indication: PRODUCT USED FOR UNKNOWN INDICATION
     Dosage: 100 ML, SINGLE
     Route: 065
     Dates: start: 20161221, end: 20161221

REACTIONS (3)
  - Abdominal pain upper [Unknown]
  - Oxygen saturation decreased [Unknown]
  - Dyspnoea [Unknown]

NARRATIVE: CASE EVENT DATE: 20161221
